FAERS Safety Report 16039804 (Version 1)
Quarter: 2019Q1

REPORT INFORMATION
  Report Type: Spontaneous
  Country: FR (occurrence: FR)
  Receive Date: 20190306
  Receipt Date: 20190306
  Transmission Date: 20190418
  Serious: Yes (Death)
  Sender: FDA-Public Use
  Company Number: FR-ALLERGAN-1908270US

PATIENT
  Sex: Female
  Weight: 40 kg

DRUGS (11)
  1. ULTRA-LEVURE [Suspect]
     Active Substance: SACCHAROMYCES CEREVISIAE
     Indication: DIARRHOEA
     Dosage: 200 MG, A DAY
     Route: 048
     Dates: end: 20181029
  2. NEBIVOLOL HCL - BP [Suspect]
     Active Substance: NEBIVOLOL
     Indication: HYPERTENSION
     Dosage: 1.25 MG, A DAY
     Route: 048
     Dates: end: 20181029
  3. METOJECT [Suspect]
     Active Substance: METHOTREXATE SODIUM
     Indication: RHEUMATOID ARTHRITIS
     Dosage: 10 MG, Q WEEK
     Route: 058
     Dates: end: 20181011
  4. IMOVANE [Suspect]
     Active Substance: ZOPICLONE
     Indication: INSOMNIA
     Dosage: 7.5 MG, A DAY
     Route: 048
     Dates: end: 20181029
  5. LEVOTHYROX [Suspect]
     Active Substance: LEVOTHYROXINE
     Indication: HYPOTHYROIDISM
     Dosage: UNK
     Route: 048
     Dates: end: 20181029
  6. FRAGMINE [Suspect]
     Active Substance: DALTEPARIN SODIUM
     Indication: THROMBOSIS PROPHYLAXIS
     Dosage: UNK
     Route: 058
     Dates: end: 20181029
  7. ACLASTA [Suspect]
     Active Substance: ZOLEDRONIC ACID
     Indication: OSTEOPOROTIC FRACTURE
     Dosage: UNK
     Route: 042
     Dates: end: 20181029
  8. PARACETAMOL [Suspect]
     Active Substance: ACETAMINOPHEN
     Indication: ARTHRALGIA
     Dosage: 3 G, A DAY
     Route: 048
     Dates: end: 20181029
  9. SERESTA [Suspect]
     Active Substance: OXAZEPAM
     Dosage: 50 MG, A DAY
     Route: 048
     Dates: end: 20181029
  10. FOLIC ACID. [Suspect]
     Active Substance: FOLIC ACID
     Indication: ANAEMIA MACROCYTIC
     Dosage: 5 MG, Q WEEK
     Route: 048
     Dates: end: 20181029
  11. SERESTA [Suspect]
     Active Substance: OXAZEPAM
     Indication: ANXIETY DISORDER
     Dosage: 10 MG, A DAY
     Route: 048
     Dates: end: 20181029

REACTIONS (4)
  - Femur fracture [Unknown]
  - Sudden death [Fatal]
  - Fall [Unknown]
  - Lung disorder [Unknown]

NARRATIVE: CASE EVENT DATE: 201809
